FAERS Safety Report 9914661 (Version 1)
Quarter: 2014Q1

REPORT INFORMATION
  Report Type: Spontaneous
  Country: HU (occurrence: HU)
  Receive Date: 20140220
  Receipt Date: 20140220
  Transmission Date: 20141002
  Serious: Yes (Death)
  Sender: FDA-Public Use
  Company Number: HU-ELI_LILLY_AND_COMPANY-HU201402003967

PATIENT
  Age: 63 Year
  Sex: Male

DRUGS (3)
  1. ZYPADHERA [Suspect]
     Indication: SCHIZOPHRENIA, PARANOID TYPE
     Dosage: 405 MG, EVERY THREE WEEKS
     Route: 030
     Dates: start: 20130724
  2. RIVOTRIL [Concomitant]
  3. NORMODIPINE [Concomitant]
     Dosage: 5 MG, BID

REACTIONS (2)
  - Completed suicide [Fatal]
  - Inappropriate schedule of drug administration [Unknown]
